FAERS Safety Report 8814724 (Version 3)
Quarter: 2013Q1

REPORT INFORMATION
  Report Type: Spontaneous
  Country: US (occurrence: US)
  Receive Date: 20120928
  Receipt Date: 20130318
  Transmission Date: 20140127
  Serious: Yes (Other)
  Sender: FDA-Public Use
  Company Number: US-009507513-1209USA007105

PATIENT
  Sex: Male

DRUGS (2)
  1. ZOCOR [Suspect]
     Indication: BLOOD CHOLESTEROL DECREASED
     Dosage: 1 DF, HS
     Route: 048
     Dates: start: 201208, end: 201302
  2. ZOCOR [Suspect]
     Indication: HYPERCHOLESTEROLAEMIA
     Dosage: 80 MG, QD

REACTIONS (20)
  - Coronary artery bypass [Unknown]
  - Prostate cancer [Unknown]
  - Coronary artery disease [Unknown]
  - Drug ineffective [Unknown]
  - Cardiac disorder [Unknown]
  - Diastolic dysfunction [Unknown]
  - Joint stiffness [Unknown]
  - Muscle fatigue [Unknown]
  - Extrasystoles [Unknown]
  - Prostatectomy [Unknown]
  - Hernia repair [Unknown]
  - Hernia [Unknown]
  - Anal fissure [Unknown]
  - Anal fissure excision [Unknown]
  - Cataract operation [Unknown]
  - Cataract [Unknown]
  - Hypertension [Unknown]
  - Glucose tolerance impaired [Unknown]
  - Prostatic specific antigen increased [Unknown]
  - Inappropriate schedule of drug administration [Unknown]
